FAERS Safety Report 5526279-0 (Version None)
Quarter: 2007Q4

REPORT INFORMATION
  Report Type: 
  Country: None (occurrence: None)
  Receive Date: 20071127
  Receipt Date: 20071122
  Transmission Date: 20080405
  Serious: Yes (Death)
  Sender: FDA-Public Use
  Company Number: SG-BAYER-200716985GPV

PATIENT
  Age: 81 Year
  Sex: Female
  Weight: 67 kg

DRUGS (3)
  1. SORAFENIB [Suspect]
     Indication: HEPATIC NEOPLASM MALIGNANT
     Route: 048
     Dates: start: 20070904
  2. SORAFENIB [Suspect]
     Route: 048
     Dates: start: 20070925, end: 20071001
  3. SORAFENIB [Suspect]
     Route: 048
     Dates: start: 20071002, end: 20071010

REACTIONS (1)
  - HEPATIC FAILURE [None]
